FAERS Safety Report 9702536 (Version 1)
Quarter: 2013Q4

REPORT INFORMATION
  Report Type: Spontaneous
  Country: JP (occurrence: JP)
  Receive Date: 20131121
  Receipt Date: 20131121
  Transmission Date: 20140711
  Serious: Yes (Other)
  Sender: FDA-Public Use
  Company Number: JP-ACTAVIS-2013-20963

PATIENT
  Age: 69 Year
  Sex: Male

DRUGS (6)
  1. VINORELBINE (UNKNOWN) [Suspect]
     Indication: SQUAMOUS CELL CARCINOMA OF LUNG
     Dosage: UNK
     Route: 042
  2. VINORELBINE (UNKNOWN) [Suspect]
     Indication: METASTASES TO LUNG
  3. GEMCITABINE [Concomitant]
     Indication: SQUAMOUS CELL CARCINOMA OF LUNG
     Dosage: UNK
     Route: 065
  4. GEMCITABINE [Concomitant]
     Indication: METASTASES TO LUNG
  5. OXYCODONE HCL CONTROLLED RELEASE [Concomitant]
     Indication: PAIN
     Dosage: 120 MG, DAILY
     Route: 065
  6. LOXOPROFEN [Concomitant]
     Indication: PAIN
     Dosage: 180 MG, DAILY
     Route: 065

REACTIONS (1)
  - Tumour pain [Recovered/Resolved]
